FAERS Safety Report 20016480 (Version 1)
Quarter: 2021Q4

REPORT INFORMATION
  Report Type: Spontaneous
  Country: US (occurrence: None)
  Receive Date: 20211103
  Receipt Date: 20211103
  Transmission Date: 20220303
  Serious: No
  Sender: FDA-Public Use
  Company Number: None

PATIENT
  Age: 37 Year
  Sex: Female
  Weight: 66.68 kg

DRUGS (2)
  1. CODEINE [Suspect]
     Active Substance: CODEINE
  2. CODEINE [Concomitant]
     Active Substance: CODEINE
     Dates: start: 20210503, end: 20210503

REACTIONS (2)
  - Rash [None]
  - Pruritus [None]

NARRATIVE: CASE EVENT DATE: 20210503
